FAERS Safety Report 4892138-X (Version None)
Quarter: 2006Q1

REPORT INFORMATION
  Report Type: 
  Country: None (occurrence: None)
  Receive Date: 20060124
  Receipt Date: 20051206
  Transmission Date: 20060701
  Serious: No
  Sender: FDA-Public Use
  Company Number: MK200512-0118-1

PATIENT
  Age: 30 Year
  Sex: Female

DRUGS (2)
  1. NEUTROSPEC [Suspect]
     Indication: INFECTION
     Dosage: 23.5 MCI, ONE TIME, IV
     Route: 042
     Dates: start: 20051108, end: 20051108
  2. ALBUTEROL [Concomitant]

REACTIONS (2)
  - ANXIETY [None]
  - DYSPNOEA [None]
